FAERS Safety Report 9448619 (Version 2)
Quarter: 2013Q3

REPORT INFORMATION
  Report Type: Report from Study
  Country: BR (occurrence: BR)
  Receive Date: 20130808
  Receipt Date: 20130906
  Transmission Date: 20140515
  Serious: Yes (Hospitalization, Other)
  Sender: FDA-Public Use
  Company Number: PHHY2013BR085006

PATIENT
  Age: 33 Year
  Sex: Female
  Weight: 64.2 kg

DRUGS (12)
  1. MYCOPHENOLIC ACID [Suspect]
     Indication: IMMUNOSUPPRESSION
     Dosage: 1440 MG, A DAY
     Route: 048
     Dates: start: 20110519, end: 20110603
  2. MYCOPHENOLIC ACID [Suspect]
     Dosage: 1080 MG, A DAY
     Route: 048
     Dates: start: 20110603, end: 20121212
  3. MYCOPHENOLIC ACID [Suspect]
     Dosage: 720 MG, A DAY
     Route: 048
     Dates: start: 20121212
  4. PREDNISONE [Suspect]
     Indication: IMMUNOSUPPRESSION
     Dosage: 30 MG, UNK
     Route: 048
     Dates: start: 20110520
  5. PREDNISONE [Suspect]
     Dosage: 5 MG, UNK
     Route: 048
     Dates: start: 20111021
  6. TACROLIMUS [Suspect]
     Indication: IMMUNOSUPPRESSION
     Dosage: 10 MG, UNK
     Route: 048
     Dates: start: 20110525
  7. TACROLIMUS [Suspect]
     Dosage: 6 MG, A DAY
     Route: 048
  8. ATG RABBIT [Concomitant]
     Indication: IMMUNOSUPPRESSION
     Dosage: 100 MG, UNK
     Route: 048
     Dates: start: 20110519, end: 20110519
  9. ATG RABBIT [Concomitant]
     Dosage: 75 MG, DAILY
     Route: 048
     Dates: start: 20110520, end: 20110525
  10. VALGANCICLOVIR [Concomitant]
     Indication: ANTIVIRAL PROPHYLAXIS
     Dosage: 450 MG, UNK
     Route: 048
     Dates: start: 20110527, end: 20110902
  11. SULFAMETHOXAZOLE AND TRIMETHOPRIM [Concomitant]
     Indication: PNEUMOCYSTIS JIROVECII PNEUMONIA
     Dosage: 400/80 MG
     Route: 048
     Dates: start: 20110519, end: 20111209
  12. EVEROLIMUS [Concomitant]
     Indication: IMMUNOSUPPRESSION
     Dosage: 3 MG, DAILY
     Route: 048
     Dates: start: 20121212

REACTIONS (9)
  - Glomerulosclerosis [Unknown]
  - Renal arteriosclerosis [Unknown]
  - Renal tubular necrosis [Unknown]
  - Nephrosclerosis [Unknown]
  - BK virus infection [Recovering/Resolving]
  - Anaemia [Recovering/Resolving]
  - Herpes zoster [Recovering/Resolving]
  - Tuberculosis [Recovering/Resolving]
  - Diarrhoea [Recovering/Resolving]
